FAERS Safety Report 24629969 (Version 1)
Quarter: 2024Q4

REPORT INFORMATION
  Report Type: Spontaneous
  Country: IT (occurrence: IT)
  Receive Date: 20241118
  Receipt Date: 20241118
  Transmission Date: 20250115
  Serious: Yes (Death, Life-Threatening, Hospitalization)
  Sender: MACLEODS
  Company Number: IT-MACLEODS PHARMA-MAC2024050296

PATIENT

DRUGS (3)
  1. POTASSIUM CHLORIDE [Suspect]
     Active Substance: POTASSIUM CHLORIDE
     Indication: Hypokalaemia
     Dosage: 500 ML OF 0.9% SALINE SOLUTION AND 6 VIALS OF NACL FOR 8 H, PLUS KCL 40 MEQ/L DILUTED IN SALINE
     Route: 065
  2. SODIUM CHLORIDE [Suspect]
     Active Substance: SODIUM CHLORIDE
     Indication: Hyponatraemia
     Dosage: 500 ML OF 0.9% SALINE SOLUTION AND 6 VIALS OF NACL FOR 8 H, PLUS KCL 40 MEQ/L DILUTED IN SALINE
     Route: 065
  3. REMDESIVIR [Concomitant]
     Active Substance: REMDESIVIR
     Route: 065

REACTIONS (6)
  - Osmotic demyelination syndrome [Fatal]
  - Coma [Fatal]
  - Status epilepticus [Fatal]
  - Stress cardiomyopathy [Unknown]
  - Cardiac failure [Unknown]
  - Pericardial effusion [Unknown]
